FAERS Safety Report 17046234 (Version 4)
Quarter: 2021Q2

REPORT INFORMATION
  Report Type: Report from Study
  Country: JP (occurrence: JP)
  Receive Date: 20191119
  Receipt Date: 20210630
  Transmission Date: 20210716
  Serious: Yes (Hospitalization, Other)
  Sender: FDA-Public Use
  Company Number: JP-ALEXION-A201908695

PATIENT
  Sex: Female
  Weight: 43 kg

DRUGS (34)
  1. SOLIRIS [Suspect]
     Active Substance: ECULIZUMAB
     Indication: PAROXYSMAL NOCTURNAL HAEMOGLOBINURIA
     Dosage: 600 MG, QW
     Route: 042
     Dates: start: 20131125, end: 20131216
  2. SOLIRIS [Suspect]
     Active Substance: ECULIZUMAB
     Dosage: 900 MG, Q2W
     Route: 042
     Dates: start: 20131224, end: 20191021
  3. NESP [Concomitant]
     Active Substance: DARBEPOETIN ALFA
     Dosage: 180 ?G, SINGLE
     Route: 065
     Dates: start: 20180507, end: 20180507
  4. NESP [Concomitant]
     Active Substance: DARBEPOETIN ALFA
     Dosage: 180 ?G, SINGLE
     Route: 065
     Dates: start: 20180604, end: 20180604
  5. NESP [Concomitant]
     Active Substance: DARBEPOETIN ALFA
     Dosage: 180 ?G, SINGLE
     Route: 065
     Dates: start: 20180618, end: 20180618
  6. NESP [Concomitant]
     Active Substance: DARBEPOETIN ALFA
     Dosage: 180 ?G, SINGLE
     Route: 065
     Dates: start: 20181009, end: 20181009
  7. NESP [Concomitant]
     Active Substance: DARBEPOETIN ALFA
     Dosage: 180 ?G, SINGLE
     Route: 065
     Dates: start: 20190311, end: 20190311
  8. NEORAL [Concomitant]
     Active Substance: CYCLOSPORINE
     Indication: PAROXYSMAL NOCTURNAL HAEMOGLOBINURIA
     Dosage: 25 MG, DAILY
     Route: 065
     Dates: start: 20180604, end: 20180701
  9. VICCILLIN                          /00000502/ [Concomitant]
     Active Substance: AMPICILLIN SODIUM
     Indication: INFECTION PROPHYLAXIS
     Dosage: 3 G, SINGLE
     Route: 065
     Dates: start: 20181213, end: 20181213
  10. NESP [Concomitant]
     Active Substance: DARBEPOETIN ALFA
     Dosage: 180 ?G, SINGLE
     Route: 065
     Dates: start: 20180717, end: 20180717
  11. NESP [Concomitant]
     Active Substance: DARBEPOETIN ALFA
     Dosage: 180 ?G, SINGLE
     Route: 065
     Dates: start: 20181105, end: 20181105
  12. NESP [Concomitant]
     Active Substance: DARBEPOETIN ALFA
     Dosage: 180 ?G, SINGLE
     Route: 065
     Dates: start: 20181203, end: 20181203
  13. NESP [Concomitant]
     Active Substance: DARBEPOETIN ALFA
     Dosage: 180 ?G, SINGLE
     Route: 065
     Dates: start: 20190116, end: 20190116
  14. NESP [Concomitant]
     Active Substance: DARBEPOETIN ALFA
     Dosage: 180 ?G, SINGLE
     Route: 065
     Dates: start: 20190128, end: 20190128
  15. NESP [Concomitant]
     Active Substance: DARBEPOETIN ALFA
     Dosage: 180 ?G, SINGLE
     Route: 065
     Dates: start: 20190325, end: 20190325
  16. LANSOPRAZOLE. [Concomitant]
     Active Substance: LANSOPRAZOLE
     Indication: PROPHYLAXIS AGAINST GASTROINTESTINAL ULCER
     Dosage: 15 MG, DAILY
     Route: 065
     Dates: start: 20180514
  17. NESP [Concomitant]
     Active Substance: DARBEPOETIN ALFA
     Dosage: 180 ?G, SINGLE
     Route: 065
     Dates: start: 20180702, end: 20180702
  18. NESP [Concomitant]
     Active Substance: DARBEPOETIN ALFA
     Dosage: 180 ?G, SINGLE
     Route: 065
     Dates: start: 20180730, end: 20180730
  19. NESP [Concomitant]
     Active Substance: DARBEPOETIN ALFA
     Dosage: 180 ?G, SINGLE
     Route: 065
     Dates: start: 20180423, end: 20180423
  20. NESP [Concomitant]
     Active Substance: DARBEPOETIN ALFA
     Dosage: 180 ?G, SINGLE
     Route: 065
     Dates: start: 20181219, end: 20181219
  21. NESP [Concomitant]
     Active Substance: DARBEPOETIN ALFA
     Dosage: 180 ?G, SINGLE
     Route: 065
     Dates: start: 20190104, end: 20190104
  22. NESP [Concomitant]
     Active Substance: DARBEPOETIN ALFA
     Dosage: 180 ?G, SINGLE
     Route: 065
     Dates: start: 20190225, end: 20190225
  23. NEORAL [Concomitant]
     Active Substance: CYCLOSPORINE
     Indication: PLATELET COUNT DECREASED
     Dosage: 50 MG, UNK
     Route: 065
     Dates: start: 20180702, end: 20180717
  24. NEORAL [Concomitant]
     Active Substance: CYCLOSPORINE
     Dosage: 100 MG, UNK
     Route: 065
     Dates: start: 20180718, end: 20190115
  25. NESP [Concomitant]
     Active Substance: DARBEPOETIN ALFA
     Dosage: 180 ?G, SINGLE
     Route: 065
     Dates: start: 20180827, end: 20180827
  26. NESP [Concomitant]
     Active Substance: DARBEPOETIN ALFA
     Dosage: 180 ?G, SINGLE
     Route: 065
     Dates: start: 20180925, end: 20180925
  27. NESP [Concomitant]
     Active Substance: DARBEPOETIN ALFA
     Dosage: 180 ?G, SINGLE
     Route: 065
     Dates: start: 20181022, end: 20181022
  28. NESP [Concomitant]
     Active Substance: DARBEPOETIN ALFA
     Dosage: 180 ?G, SINGLE
     Route: 065
     Dates: start: 20190212, end: 20190212
  29. NEORAL [Concomitant]
     Active Substance: CYCLOSPORINE
     Dosage: 50 MG, DAILY
     Route: 065
     Dates: start: 20190116
  30. NESP [Concomitant]
     Active Substance: DARBEPOETIN ALFA
     Dosage: 180 ?G, SINGLE
     Route: 065
     Dates: start: 20180521, end: 20180521
  31. NESP [Concomitant]
     Active Substance: DARBEPOETIN ALFA
     Indication: PAROXYSMAL NOCTURNAL HAEMOGLOBINURIA
     Dosage: 180 ?G, SINGLE
     Route: 065
     Dates: start: 20180409, end: 20180409
  32. NESP [Concomitant]
     Active Substance: DARBEPOETIN ALFA
     Dosage: 180 ?G, SINGLE
     Route: 065
     Dates: start: 20180813, end: 20180813
  33. NESP [Concomitant]
     Active Substance: DARBEPOETIN ALFA
     Dosage: 180 ?G, SINGLE
     Route: 065
     Dates: start: 20180910, end: 20180910
  34. NESP [Concomitant]
     Active Substance: DARBEPOETIN ALFA
     Dosage: 180 ?G, SINGLE
     Route: 065
     Dates: start: 20181119, end: 20181119

REACTIONS (6)
  - Pancytopenia [Recovering/Resolving]
  - Eye pain [Recovered/Resolved]
  - Haemolysis [Recovered/Resolved]
  - Conductive deafness [Recovered/Resolved]
  - Upper respiratory tract inflammation [Recovered/Resolved]
  - Periodontitis [Unknown]

NARRATIVE: CASE EVENT DATE: 20180423
